FAERS Safety Report 17445155 (Version 9)
Quarter: 2021Q1

REPORT INFORMATION
  Report Type: Spontaneous
  Country: US (occurrence: US)
  Receive Date: 20200221
  Receipt Date: 20210212
  Transmission Date: 20210419
  Serious: Yes (Disabling)
  Sender: FDA-Public Use
  Company Number: US-PFIZER INC-2019542308

PATIENT
  Age: 58 Year
  Sex: Female
  Weight: 74.84 kg

DRUGS (7)
  1. CELECOXIB. [Suspect]
     Active Substance: CELECOXIB
     Indication: MIGRAINE
     Dosage: 200 MG, DAILY
     Route: 048
  2. BOTOX [Concomitant]
     Active Substance: ONABOTULINUMTOXINA
     Indication: MIGRAINE
     Dosage: UNK, EVERY 3 MONTHS
  3. CELECOXIB. [Suspect]
     Active Substance: CELECOXIB
     Indication: NECK PAIN
  4. ATIVAN [Concomitant]
     Active Substance: LORAZEPAM
     Indication: ANTIDEPRESSANT THERAPY
     Dosage: UNK
  5. NORTRIPTYLINE [Concomitant]
     Active Substance: NORTRIPTYLINE
     Indication: ANTIDEPRESSANT THERAPY
     Dosage: UNK
  6. CELECOXIB. [Suspect]
     Active Substance: CELECOXIB
     Indication: FIBROMYALGIA
  7. GABAPENTIN. [Concomitant]
     Active Substance: GABAPENTIN
     Dosage: 300 MG (LOW DOSE), UNK

REACTIONS (17)
  - Drug hypersensitivity [Unknown]
  - Neck pain [Unknown]
  - Migraine [Unknown]
  - Anxiety [Unknown]
  - Dizziness [Unknown]
  - Fibromyalgia [Unknown]
  - Mobility decreased [Unknown]
  - Feeling abnormal [Unknown]
  - Vision blurred [Unknown]
  - Drug ineffective [Unknown]
  - Drug intolerance [Recovered/Resolved]
  - Illness [Unknown]
  - Off label use [Unknown]
  - Malaise [Unknown]
  - Headache [Unknown]
  - Condition aggravated [Unknown]
  - Quality of life decreased [Unknown]

NARRATIVE: CASE EVENT DATE: 2016
